FAERS Safety Report 5419171-3 (Version None)
Quarter: 2007Q3

REPORT INFORMATION
  Report Type: 
  Country: None (occurrence: None)
  Receive Date: 20070815
  Receipt Date: 20070815
  Transmission Date: 20080115
  Serious: Yes (Hospitalization)
  Sender: FDA-Public Use
  Company Number: None

PATIENT
  Age: 52 Year
  Sex: Male
  Weight: 87.8 kg

DRUGS (14)
  1. CISPLATIN [Suspect]
     Indication: NEOPLASM MALIGNANT
     Dosage: 30 MG/M2
     Dates: start: 20070517
  2. ERBITUX [Suspect]
     Indication: NEOPLASM MALIGNANT
     Dosage: 250 MG/M2
     Dates: start: 20070501
  3. RT [Suspect]
     Indication: NEOPLASM MALIGNANT
     Dosage: DAILY
     Dates: start: 20070709
  4. DECADRON [Concomitant]
  5. ZANTAC 150 [Concomitant]
  6. OXYCODONE HCL [Concomitant]
  7. HUMALOG/LANTUS [Concomitant]
  8. KYTRIL [Concomitant]
  9. FENTANYL [Concomitant]
  10. ATIVAN [Concomitant]
  11. MARINOL [Concomitant]
  12. DIOVAN [Concomitant]
  13. ZOLPIDEM TARTRATE [Concomitant]
  14. COMPAZIR [Concomitant]

REACTIONS (2)
  - NAUSEA [None]
  - VOMITING [None]
